FAERS Safety Report 10710733 (Version 1)
Quarter: 2015Q1

REPORT INFORMATION
  Report Type: Spontaneous
  Country: US (occurrence: US)
  Receive Date: 20150114
  Receipt Date: 20150114
  Transmission Date: 20150721
  Serious: Yes (Death)
  Sender: FDA-Public Use
  Company Number: US-PFIZER INC-2015006846

PATIENT
  Age: 38 Year
  Sex: Female

DRUGS (7)
  1. CLONAZEPAM. [Suspect]
     Active Substance: CLONAZEPAM
  2. CYCLOBENZAPRINE [Suspect]
     Active Substance: CYCLOBENZAPRINE
  3. TRAMADOL [Suspect]
     Active Substance: TRAMADOL
  4. DIPHENHYDRAMINE [Suspect]
     Active Substance: DIPHENHYDRAMINE
  5. GABAPENTIN. [Suspect]
     Active Substance: GABAPENTIN
  6. IBUPROFEN. [Suspect]
     Active Substance: IBUPROFEN
  7. DULOXETINE [Suspect]
     Active Substance: DULOXETINE

REACTIONS (4)
  - Cardiac arrest [Fatal]
  - Respiratory arrest [Fatal]
  - Toxicity to various agents [None]
  - Completed suicide [Fatal]

NARRATIVE: CASE EVENT DATE: 2013
